FAERS Safety Report 8075829-1 (Version None)
Quarter: 2012Q1

REPORT INFORMATION
  Report Type: 
  Country: None (occurrence: None)
  Receive Date: 20120127
  Receipt Date: 20120123
  Transmission Date: 20120608
  Serious: No
  Sender: FDA-Public Use
  Company Number: US-PFIZER INC-2012018574

PATIENT
  Sex: Female
  Weight: 69.841 kg

DRUGS (1)
  1. IBUPROFEN (ADVIL) [Suspect]
     Dosage: 200 MG, UNK
     Route: 048
     Dates: start: 20120121, end: 20120121

REACTIONS (1)
  - HEART RATE INCREASED [None]
